FAERS Safety Report 24036273 (Version 1)
Quarter: 2024Q3

REPORT INFORMATION
  Report Type: Spontaneous
  Country: ES (occurrence: ES)
  Receive Date: 20240701
  Receipt Date: 20240701
  Transmission Date: 20241016
  Serious: Yes (Life-Threatening, Hospitalization, Other)
  Sender: FRESENIUS KABI
  Company Number: None

PATIENT
  Age: 74 Year
  Sex: Male
  Weight: 84 kg

DRUGS (20)
  1. FUROSEMIDE [Suspect]
     Active Substance: FUROSEMIDE
     Indication: Cardiac failure
     Route: 042
     Dates: start: 20230305, end: 20230309
  2. INDOMETHACIN [Suspect]
     Active Substance: INDOMETHACIN
     Indication: Retinitis
     Dosage: 75MG/24H
     Route: 048
     Dates: start: 20230306, end: 20230308
  3. Eplerenone 25 mg 200 tablets [Concomitant]
     Indication: Cardiac failure
     Dosage: 25MG/24H
     Route: 048
  4. Pantoprazole 40 mg 1 tablet [Concomitant]
     Indication: Prophylaxis against gastrointestinal ulcer
     Dosage: 40MG/24H
     Route: 048
  5. Acetazolamide 250 mg 20 tablets [Concomitant]
     Indication: Cardiac failure
     Dosage: 250MG/24H
     Route: 048
  6. MAGNESIOBOI 48.62 mg tablets, 50 tablets [Concomitant]
     Indication: Magnesium deficiency
     Dosage: 1 COMP/24H
     Route: 048
  7. Human Albumin 200 g/L injectable/perfusion 10 ml [Concomitant]
     Indication: Hypoalbuminaemia
     Dosage: 10G/8H
     Route: 042
  8. BOI-K EFERVESCENT TABLETS, 20 tablets [Concomitant]
     Indication: Hypokalaemia
     Dosage: 1 TAB/24H
     Route: 048
  9. Clindamycin 600 mg injectable 4 ml [Concomitant]
     Indication: Periorbital cellulitis
     Dosage: 600MG/8H
     Route: 042
     Dates: start: 20230301, end: 20230309
  10. XARELTO 20 mg FILM COATED TABLETS (100 TABLETS), 100 tablets [Concomitant]
     Indication: Thrombosis prophylaxis
     Dosage: 20MG/24H
     Route: 048
  11. Clortalidone 50 mg 30 tablets [Concomitant]
     Indication: Cardiac failure
     Dosage: 50MG/24H
     Route: 048
  12. Atorvastatin 10 mg 200 tablets [Concomitant]
     Indication: Hypercholesterolaemia
     Dosage: 10MG/24H
     Route: 048
  13. Piperacilin/Tazobactam 2.000 mg/250 mg injection [Concomitant]
     Indication: Periorbital cellulitis
     Dosage: 4G/8H
     Route: 042
     Dates: start: 20230301, end: 20230308
  14. ADENURIC 80 mg FILM COATED TABLETS , 28 tablets [Concomitant]
     Indication: Cardiac failure
     Dosage: 80MG/24H
     Route: 048
  15. HIDROXIL B1-B6-B12 FILM COATED TABLETS , 30 tablets [Concomitant]
     Indication: Vitamin B complex deficiency
     Dosage: 1 TAB
     Route: 048
  16. ACFOL 5 mg TABLETS, 28 tablet [Concomitant]
     Indication: Folate deficiency
     Dosage: 5MG/24H
     Route: 048
  17. HYDROPHEROL 0.266 MG SOFT CAPSULES (Blister PVC/PVDC-ALUMINIUM) [Concomitant]
     Indication: Hypovitaminosis
     Dosage: 1 CAPSULE/MONTH
     Route: 048
  18. Furosemide 40 mg 10 tablets [Concomitant]
     Indication: Cardiac failure
     Dosage: 40MG/12H
     Route: 048
     Dates: start: 20230301, end: 20230305
  19. Bisoprolol 2.5 mg 100 tablets [Concomitant]
     Indication: Cardiac failure
     Dosage: 2.5MG/24H
     Route: 048
  20. ADIRO 100 MG GASTRORESISTENT TABLETS EFG, 500 tablets [Concomitant]
     Indication: Prophylaxis
     Dosage: 100MG/24H
     Route: 048

REACTIONS (1)
  - Acute kidney injury [Recovered/Resolved with Sequelae]

NARRATIVE: CASE EVENT DATE: 20230309
